FAERS Safety Report 4701479-8 (Version None)
Quarter: 2005Q2

REPORT INFORMATION
  Report Type: 
  Country: None (occurrence: None)
  Receive Date: 20050628
  Receipt Date: 20050620
  Transmission Date: 20051028
  Serious: Yes (Disabling)
  Sender: FDA-Public Use
  Company Number: DK-ROCHE-408127

PATIENT
  Age: 26 Year
  Sex: Female

DRUGS (3)
  1. ROACCUTAN [Suspect]
     Indication: ACNE
     Route: 048
     Dates: start: 20041027, end: 20050426
  2. ACCUTIN [Suspect]
     Indication: ACNE
     Route: 048
     Dates: start: 20041027, end: 20050426
  3. DIANE MITE [Concomitant]
     Indication: ACNE
     Dosage: DOSAGE REGIMEN REPORTED AS CYCLE
     Dates: start: 20000615

REACTIONS (5)
  - ARTHRALGIA [None]
  - ARTHROPATHY [None]
  - FLAT AFFECT [None]
  - JOINT SWELLING [None]
  - NODULE [None]
